FAERS Safety Report 19958699 (Version 1)
Quarter: 2021Q4

REPORT INFORMATION
  Report Type: Spontaneous
  Country: US (occurrence: US)
  Receive Date: 20211012
  Receipt Date: 20211012
  Transmission Date: 20220303
  Serious: Yes (Hospitalization)
  Sender: FDA-Public Use
  Company Number: None

PATIENT
  Age: 73 Year
  Sex: Male
  Weight: 126.55 kg

DRUGS (3)
  1. AMIODARONE [Suspect]
     Active Substance: AMIODARONE
     Indication: Atrial fibrillation
     Route: 048
     Dates: start: 20210220, end: 20210303
  2. AMIODARONE [Suspect]
     Active Substance: AMIODARONE
     Dates: start: 20210223, end: 20210303
  3. AMIODARONE [Suspect]
     Active Substance: AMIODARONE

REACTIONS (15)
  - Pulmonary toxicity [None]
  - Pulmonary alveolar haemorrhage [None]
  - Acute respiratory failure [None]
  - Lung consolidation [None]
  - Eosinophilia [None]
  - Rash morbilliform [None]
  - Leukocytosis [None]
  - Pneumonitis [None]
  - Toxicity to various agents [None]
  - Hypersensitivity [None]
  - Drug reaction with eosinophilia and systemic symptoms [None]
  - Rash pruritic [None]
  - Respiratory distress [None]
  - Rales [None]
  - Respiratory depression [None]

NARRATIVE: CASE EVENT DATE: 20210303
